FAERS Safety Report 19141771 (Version 6)
Quarter: 2022Q1

REPORT INFORMATION
  Report Type: Report from Study
  Country: BR (occurrence: BR)
  Receive Date: 20210415
  Receipt Date: 20220119
  Transmission Date: 20220423
  Serious: Yes (Hospitalization, Other)
  Sender: FDA-Public Use
  Company Number: NVSC2021BR081635

PATIENT
  Age: 67 Year
  Sex: Female
  Weight: 56.5 kg

DRUGS (8)
  1. KISQALI [Suspect]
     Active Substance: RIBOCICLIB
     Indication: Product used for unknown indication
     Dosage: UNK
     Route: 065
     Dates: start: 20210314, end: 20210425
  2. PANTOPRAZOLE SODIUM [Suspect]
     Active Substance: PANTOPRAZOLE SODIUM
     Indication: Gastric disorder
     Dosage: 40 MG, QD
     Route: 048
     Dates: start: 20210319, end: 20210325
  3. XARELTO [Concomitant]
     Active Substance: RIVAROXABAN
     Indication: Anticoagulant therapy
     Dosage: 30 MG, QD
     Route: 048
     Dates: start: 20210319, end: 20210325
  4. XARELTO [Concomitant]
     Active Substance: RIVAROXABAN
     Dosage: UNK
     Route: 065
  5. BROMOPRIDE [Concomitant]
     Active Substance: BROMOPRIDE
     Indication: Gastrointestinal motility disorder
     Dosage: 10 MG, BID
     Route: 048
     Dates: start: 20210319, end: 20210325
  6. BUSCOPAN A BOEHRINGER [Concomitant]
     Indication: Analgesic therapy
     Dosage: 1 TABLET, Q8H
     Route: 048
     Dates: start: 20210319, end: 20210325
  7. METAMIZOLE [Concomitant]
     Active Substance: METAMIZOLE
     Indication: Analgesic therapy
     Dosage: 1 G, Q6H
     Route: 048
     Dates: start: 20210319, end: 20210325
  8. FASLODEX [Concomitant]
     Active Substance: FULVESTRANT
     Indication: Product used for unknown indication
     Dosage: UNK
     Route: 065

REACTIONS (32)
  - Subileus [Recovered/Resolved]
  - Gastrointestinal inflammation [Unknown]
  - Urinary tract infection [Not Recovered/Not Resolved]
  - Antimicrobial susceptibility test resistant [Unknown]
  - Poisoning [Unknown]
  - Pneumonitis chemical [Recovering/Resolving]
  - Intestinal obstruction [Unknown]
  - Small intestinal obstruction [Recovering/Resolving]
  - Faecal vomiting [Recovering/Resolving]
  - Gastritis [Unknown]
  - Malaise [Unknown]
  - Blood pressure decreased [Unknown]
  - Neoplasm [Unknown]
  - Inflammation [Unknown]
  - Swelling [Unknown]
  - Eye disorder [Unknown]
  - Pain [Unknown]
  - Post procedural complication [Unknown]
  - Secretion discharge [Unknown]
  - Apathy [Unknown]
  - Lymphoedema [Unknown]
  - Polymerase chain reaction positive [Recovering/Resolving]
  - Weight increased [Unknown]
  - Feeling abnormal [Unknown]
  - Urine abnormality [Recovering/Resolving]
  - Blood urine present [Recovering/Resolving]
  - Transaminases increased [Recovering/Resolving]
  - Aspartate aminotransferase increased [Unknown]
  - Abdominal pain [Unknown]
  - White blood cell count decreased [Unknown]
  - Vomiting [Unknown]
  - Wrong technique in product usage process [Unknown]

NARRATIVE: CASE EVENT DATE: 20210325
